FAERS Safety Report 8941458 (Version 2)
Quarter: 2013Q1

REPORT INFORMATION
  Report Type: Spontaneous
  Country: CH (occurrence: CH)
  Receive Date: 20121203
  Receipt Date: 20130114
  Transmission Date: 20140127
  Serious: Yes (Other)
  Sender: FDA-Public Use
  Company Number: CH-ABBOTT-12P-151-1015276-00

PATIENT
  Sex: Female

DRUGS (3)
  1. KALETRA [Suspect]
     Indication: HIV INFECTION
     Dates: start: 2005
  2. RETROVIR AZT [Suspect]
     Indication: HIV INFECTION
     Dates: start: 2005
  3. VIREAD [Suspect]
     Indication: HIV INFECTION
     Dates: start: 2005

REACTIONS (1)
  - Abortion spontaneous [Unknown]
